FAERS Safety Report 8549388-0 (Version None)
Quarter: 2012Q3

REPORT INFORMATION
  Report Type: 
  Country: None (occurrence: None)
  Receive Date: 20120730
  Receipt Date: 20120720
  Transmission Date: 20120928
  Serious: Yes (Hospitalization)
  Sender: FDA-Public Use
  Company Number: US-JNJFOC-20120705602

PATIENT
  Sex: Male

DRUGS (22)
  1. ANTIBIOTICS [Concomitant]
     Indication: INFLAMMATORY BOWEL DISEASE
  2. CALMOSEPTINE [Concomitant]
     Indication: ECZEMA
  3. QUESTRAN [Concomitant]
  4. ROXICET [Concomitant]
  5. WELCHOL [Concomitant]
  6. PROAIR HFA [Concomitant]
  7. LOPRESSOR [Concomitant]
  8. INDERAL [Concomitant]
  9. CLARITIN [Concomitant]
  10. REMICADE [Suspect]
     Indication: INFLAMMATORY BOWEL DISEASE
     Route: 042
     Dates: start: 20070324, end: 20071001
  11. PECTIN [Concomitant]
  12. OMEPRAZOLE [Concomitant]
  13. PROBIOTICS [Concomitant]
  14. ISOTONIC [Concomitant]
  15. SINGULAIR [Concomitant]
  16. ZOFRAN [Concomitant]
  17. IMODIUM [Concomitant]
  18. LEXAPRO [Concomitant]
  19. ELIDEL [Concomitant]
     Route: 061
  20. TACROLIMUS [Concomitant]
  21. COMBIVENT [Concomitant]
  22. BENTYL [Concomitant]

REACTIONS (1)
  - DIARRHOEA [None]
